FAERS Safety Report 17075206 (Version 5)
Quarter: 2019Q4

REPORT INFORMATION
  Report Type: Report from Study
  Country: CA (occurrence: CA)
  Receive Date: 20191126
  Receipt Date: 20191227
  Transmission Date: 20200122
  Serious: Yes (Hospitalization)
  Sender: FDA-Public Use
  Company Number: CA-EISAI MEDICAL RESEARCH-EC-2019-065931

PATIENT
  Age: 52 Year
  Sex: Male
  Weight: 94.2 kg

DRUGS (15)
  1. LENVATINIB [Suspect]
     Active Substance: LENVATINIB
     Route: 048
     Dates: start: 20191101, end: 20191118
  2. PEMBROLIZUMAB. [Suspect]
     Active Substance: PEMBROLIZUMAB
     Indication: MALIGNANT MELANOMA
     Route: 041
     Dates: start: 20190426, end: 20191011
  3. COLACE [Concomitant]
     Active Substance: DOCUSATE SODIUM
     Dates: start: 20190208
  4. STEMETIL [Concomitant]
     Active Substance: PROCHLORPERAZINE
     Dates: start: 20190427
  5. TYLENOL ARTHRITIS PAIN [Concomitant]
     Active Substance: ACETAMINOPHEN
     Dates: start: 20190919
  6. DILAUDID [Concomitant]
     Active Substance: HYDROMORPHONE HYDROCHLORIDE
     Dates: start: 20190930
  7. HYDROCHLOROTHIAZIDE. [Concomitant]
     Active Substance: HYDROCHLOROTHIAZIDE
     Dates: start: 20190530
  8. LAX A DAY [Concomitant]
     Dates: start: 20190208
  9. LYRICA [Concomitant]
     Active Substance: PREGABALIN
     Dates: start: 20190823
  10. LENVATINIB [Suspect]
     Active Substance: LENVATINIB
     Indication: MALIGNANT MELANOMA
     Dosage: STARTING DOSE AT 20 MG, FLUCTUATED DOSE
     Route: 048
     Dates: start: 20190426, end: 20191031
  11. PEMBROLIZUMAB. [Suspect]
     Active Substance: PEMBROLIZUMAB
     Route: 041
     Dates: start: 20191101, end: 20191101
  12. SYNTHROID [Concomitant]
     Active Substance: LEVOTHYROXINE SODIUM
     Dates: start: 20190606
  13. CORTEF [Concomitant]
     Active Substance: HYDROCORTISONE
     Dates: start: 20190626, end: 20191127
  14. CORTEF [Concomitant]
     Active Substance: HYDROCORTISONE
     Dates: start: 20190627
  15. NORVASC [Concomitant]
     Active Substance: AMLODIPINE BESYLATE
     Dates: start: 20190622

REACTIONS (1)
  - Abdominal pain [Not Recovered/Not Resolved]

NARRATIVE: CASE EVENT DATE: 20191105
